FAERS Safety Report 18004713 (Version 1)
Quarter: 2020Q3

REPORT INFORMATION
  Report Type: Report from Study
  Country: FR (occurrence: FR)
  Receive Date: 20200709
  Receipt Date: 20200709
  Transmission Date: 20201103
  Serious: Yes (Hospitalization, Other)
  Sender: FDA-Public Use
  Company Number: FR-PFIZER INC-2020259064

PATIENT
  Age: 63 Year
  Sex: Male
  Weight: 93 kg

DRUGS (11)
  1. NO SUBJECT DRUG [Suspect]
     Active Substance: UNSPECIFIED INGREDIENT
     Dosage: NO DOSE GIVEN
  2. EPITOMAX [Concomitant]
     Active Substance: TOPIRAMATE
     Dosage: 75 MG, 2X/DAY (MORNING AND EVENING)
     Dates: end: 20200308
  3. STELARA [Suspect]
     Active Substance: USTEKINUMAB
     Indication: PSORIASIS
     Dosage: 45 MG EVERY 4 WEEKS
     Route: 058
     Dates: start: 20140812, end: 20140909
  4. CANDESARTAN CILEXETIL. [Concomitant]
     Active Substance: CANDESARTAN CILEXETIL
     Dosage: UNK
     Dates: start: 202003
  5. HUMIRA [Suspect]
     Active Substance: ADALIMUMAB
     Dosage: 40 MG, WEEKLY
     Route: 058
     Dates: start: 20140501, end: 20140515
  6. RELPAX [Suspect]
     Active Substance: ELETRIPTAN HYDROBROMIDE
     Indication: MIGRAINE
     Dosage: 40 MG, ALTERNATE DAY IN CASE OF CRISIS
     Dates: start: 2000
  7. HUMIRA [Suspect]
     Active Substance: ADALIMUMAB
     Dosage: 40 MG, WEEKLY
     Route: 058
     Dates: start: 20140615, end: 20140812
  8. STELARA [Suspect]
     Active Substance: USTEKINUMAB
     Dosage: 45 MG EVERY 12 WEEKS
     Route: 058
     Dates: start: 20140909, end: 201511
  9. CLARELUX [Concomitant]
     Active Substance: CLOBETASOL PROPIONATE
     Dosage: UNK
     Dates: start: 2010
  10. HUMIRA [Suspect]
     Active Substance: ADALIMUMAB
     Indication: PSORIASIS
     Dosage: 80 MG, WEEKLY
     Route: 058
     Dates: start: 20140424, end: 20140501
  11. LAROXYL [Concomitant]
     Active Substance: AMITRIPTYLINE HYDROCHLORIDE
     Dosage: UNK
     Dates: start: 202003

REACTIONS (1)
  - Drug abuse [Recovered/Resolved]

NARRATIVE: CASE EVENT DATE: 20200311
